FAERS Safety Report 13548928 (Version 1)
Quarter: 2017Q2

REPORT INFORMATION
  Report Type: Spontaneous
  Country: US (occurrence: US)
  Receive Date: 20170515
  Receipt Date: 20170515
  Transmission Date: 20170830
  Serious: Yes (Death)
  Sender: FDA-Public Use
  Company Number: None

PATIENT
  Age: 78 Year
  Sex: Female

DRUGS (7)
  1. ZYRTEC [Concomitant]
     Active Substance: CETIRIZINE HYDROCHLORIDE
  2. BIOTIN [Concomitant]
     Active Substance: BIOTIN
  3. HUMALOG [Suspect]
     Active Substance: INSULIN LISPRO
     Indication: BRAIN NEOPLASM MALIGNANT
     Route: 030
     Dates: start: 20160219
  4. LEVOTHYROXIN [Concomitant]
     Active Substance: LEVOTHYROXINE
  5. ALPRAZOLAM. [Concomitant]
     Active Substance: ALPRAZOLAM
  6. WARFARIN [Concomitant]
     Active Substance: WARFARIN
  7. ISOSORB MONO [Concomitant]
     Active Substance: ISOSORBIDE MONONITRATE

REACTIONS (1)
  - Death [None]
